FAERS Safety Report 8398348-1 (Version None)
Quarter: 2012Q2

REPORT INFORMATION
  Report Type: 
  Country: None (occurrence: None)
  Receive Date: 20120531
  Receipt Date: 20120522
  Transmission Date: 20120825
  Serious: Yes (Other)
  Sender: FDA-Public Use
  Company Number: JP-SANOFI-AVENTIS-2011SA048747

PATIENT
  Age: 63 Year
  Sex: Female
  Weight: 52 kg

DRUGS (8)
  1. FLUOROURACIL [Concomitant]
     Route: 040
     Dates: start: 20101020, end: 20101020
  2. FLUOROURACIL [Concomitant]
     Indication: COLON CANCER
     Route: 040
     Dates: start: 20100922, end: 20100922
  3. FLUOROURACIL [Concomitant]
     Route: 040
     Dates: start: 20101020, end: 20101020
  4. LEUCOVORIN CALCIUM [Concomitant]
     Indication: COLON CANCER
     Route: 041
     Dates: start: 20100922, end: 20100922
  5. OXALIPLATIN [Suspect]
     Indication: COLON CANCER
     Route: 041
     Dates: start: 20100922, end: 20100922
  6. OXALIPLATIN [Suspect]
     Route: 041
     Dates: start: 20101020, end: 20101020
  7. LEUCOVORIN CALCIUM [Concomitant]
     Route: 041
     Dates: start: 20101020, end: 20101020
  8. FLUOROURACIL [Concomitant]
     Route: 041
     Dates: start: 20100922, end: 20100922

REACTIONS (3)
  - NEUTROPHIL COUNT DECREASED [None]
  - WHITE BLOOD CELL COUNT DECREASED [None]
  - CEREBRAL INFARCTION [None]
